FAERS Safety Report 8875811 (Version 2)
Quarter: 2013Q1

REPORT INFORMATION
  Report Type: Spontaneous
  Country: US (occurrence: US)
  Receive Date: 20121030
  Receipt Date: 20130110
  Transmission Date: 20140127
  Serious: Yes (Hospitalization)
  Sender: FDA-Public Use
  Company Number: US-GLAXOSMITHKLINE-A0998395A

PATIENT
  Age: 68 Year
  Sex: Female

DRUGS (6)
  1. AVANDIA [Suspect]
     Indication: PRODUCT USED FOR UNKNOWN INDICATION
     Dates: start: 200101
  2. LASIX [Concomitant]
  3. METOPROLOL [Concomitant]
  4. POTASSIUM [Concomitant]
  5. LIPITOR [Concomitant]
  6. SULFASALAZINE [Concomitant]

REACTIONS (2)
  - Myocardial infarction [Recovered/Resolved]
  - Silent myocardial infarction [Unknown]
